FAERS Safety Report 17107010 (Version 3)
Quarter: 2020Q2

REPORT INFORMATION
  Report Type: Spontaneous
  Country: US (occurrence: US)
  Receive Date: 20191203
  Receipt Date: 20200428
  Transmission Date: 20200713
  Serious: Yes (Other)
  Sender: FDA-Public Use
  Company Number: US-LUNDBECK-DKLU3008438

PATIENT
  Age: 4 Year
  Sex: Female
  Weight: 19 kg

DRUGS (12)
  1. SABRIL [Suspect]
     Active Substance: VIGABATRIN
     Indication: EPILEPSY
     Route: 048
     Dates: start: 20190415, end: 20191125
  2. SABRIL [Suspect]
     Active Substance: VIGABATRIN
     Route: 048
     Dates: start: 20200228
  3. TOPIRAMATE. [Concomitant]
     Active Substance: TOPIRAMATE
     Route: 065
     Dates: start: 20160509
  4. DIVALPROEX [Concomitant]
     Active Substance: DIVALPROEX SODIUM
     Route: 065
     Dates: start: 20151110
  5. ALBUTEROL. [Concomitant]
     Active Substance: ALBUTEROL
     Indication: PRODUCT USED FOR UNKNOWN INDICATION
     Route: 065
  6. SABRIL [Suspect]
     Active Substance: VIGABATRIN
     Route: 048
  7. EPIDIOLEX [Concomitant]
     Active Substance: CANNABIDIOL
     Indication: EPILEPSY
     Route: 065
     Dates: start: 20181102
  8. SABRIL [Suspect]
     Active Substance: VIGABATRIN
     Route: 065
     Dates: start: 20151216
  9. SABRIL [Suspect]
     Active Substance: VIGABATRIN
     Indication: CDKL5 DEFICIENCY DISORDER
     Route: 048
  10. DIVALPROEX [Concomitant]
     Active Substance: DIVALPROEX SODIUM
     Indication: EPILEPSY
     Route: 065
     Dates: start: 20151110
  11. TOPIRAMATE. [Concomitant]
     Active Substance: TOPIRAMATE
     Indication: EPILEPSY
     Route: 065
     Dates: start: 20160509
  12. SABRIL [Suspect]
     Active Substance: VIGABATRIN
     Indication: INFANTILE SPASMS
     Route: 048
     Dates: start: 20190415, end: 20191125

REACTIONS (2)
  - Off label use [Not Recovered/Not Resolved]
  - Seizure [Unknown]

NARRATIVE: CASE EVENT DATE: 201909
